FAERS Safety Report 4359245-1 (Version None)
Quarter: 2004Q2

REPORT INFORMATION
  Report Type: 
  Country: None (occurrence: None)
  Receive Date: 20040512
  Receipt Date: 20040423
  Transmission Date: 20050107
  Serious: Yes (Death, Other)
  Sender: FDA-Public Use
  Company Number: USA020312575

PATIENT
  Age: 60 Year
  Sex: Female

DRUGS (8)
  1. ILETIN [Suspect]
     Indication: DIABETES MELLITUS
     Dates: start: 19330101
  2. HUMALOG [Suspect]
     Indication: DIABETES MELLITUS
     Dosage: 2 U AS NEEDED
     Dates: start: 19980101
  3. HUMULIN L [Suspect]
     Indication: DIABETES MELLITUS
     Dosage: 12 U/1 DAY
     Dates: start: 19980901
  4. HUMULIN R [Suspect]
     Indication: DIABETES MELLITUS
     Dosage: 2 U AS NEEDED
     Dates: start: 19980901, end: 19981101
  5. XELODA [Concomitant]
  6. PROCRIT (ERYTHROPOIETIN) [Concomitant]
  7. METOCLOPRAMIDE [Concomitant]
  8. SYNTHROID [Concomitant]

REACTIONS (10)
  - AMNESIA [None]
  - BREAST CANCER METASTATIC [None]
  - DEPRESSION [None]
  - DIABETES MELLITUS INADEQUATE CONTROL [None]
  - GINGIVITIS [None]
  - LUNG NEOPLASM MALIGNANT [None]
  - METASTASES TO LYMPH NODES [None]
  - METASTASES TO OESOPHAGUS [None]
  - METASTASES TO PLEURA [None]
  - OESOPHAGEAL CARCINOMA [None]
